FAERS Safety Report 13721243 (Version 1)
Quarter: 2017Q3

REPORT INFORMATION
  Report Type: Spontaneous
  Country: US (occurrence: US)
  Receive Date: 20170705
  Receipt Date: 20170705
  Transmission Date: 20171127
  Serious: Yes (Disabling)
  Sender: FDA-Public Use
  Company Number: None

PATIENT

DRUGS (1)
  1. CLONAZAPAM [Suspect]
     Active Substance: CLONAZEPAM
     Indication: RESTLESS LEGS SYNDROME
     Route: 048
     Dates: start: 19950101, end: 20121112

REACTIONS (8)
  - Drug tolerance [None]
  - Hyperacusis [None]
  - Cognitive disorder [None]
  - Depersonalisation/derealisation disorder [None]
  - Photophobia [None]
  - Anxiety [None]
  - Fear [None]
  - Insomnia [None]
